FAERS Safety Report 26201788 (Version 1)
Quarter: 2025Q4

REPORT INFORMATION
  Report Type: Spontaneous
  Country: JP (occurrence: JP)
  Receive Date: 20251226
  Receipt Date: 20251226
  Transmission Date: 20260118
  Serious: Yes (Hospitalization, Other)
  Sender: MERCK SHARP & DOHME LLC
  Company Number: JP-009507513-2327514

PATIENT
  Age: 76 Year
  Sex: Male

DRUGS (8)
  1. KEYTRUDA [Suspect]
     Active Substance: PEMBROLIZUMAB
     Indication: Lung adenocarcinoma stage III
     Dosage: 1 CYCLE
     Route: 041
     Dates: start: 20250813, end: 20250813
  2. KEYTRUDA [Suspect]
     Active Substance: PEMBROLIZUMAB
     Indication: Lung adenocarcinoma stage III
     Dosage: ADMINISTRATION RESUMPTION
     Route: 041
     Dates: start: 202510
  3. CISPLATIN [Suspect]
     Active Substance: CISPLATIN
     Indication: Lung adenocarcinoma stage III
     Dosage: LAST ADMIN DATE: 2025/08
     Dates: start: 20250813
  4. CISPLATIN [Suspect]
     Active Substance: CISPLATIN
     Indication: Lung adenocarcinoma stage III
     Dosage: DOSE DECREASED TO 75%; LAST ADMIN DATE: 2025
     Dates: start: 202510
  5. CISPLATIN [Suspect]
     Active Substance: CISPLATIN
     Indication: Lung adenocarcinoma stage III
     Dosage: DOSE DECREASED TO 60%
     Dates: start: 20251111
  6. PEMETREXED [Suspect]
     Active Substance: PEMETREXED
     Indication: Lung adenocarcinoma stage III
     Dosage: LAST ADMIN DATE: 2025/08
     Dates: start: 20250813
  7. PEMETREXED [Suspect]
     Active Substance: PEMETREXED
     Indication: Lung adenocarcinoma stage III
     Dosage: DOSE DECREASED TO 75%; LAST ADMIN DATE: 2025
     Dates: start: 202510
  8. PEMETREXED [Suspect]
     Active Substance: PEMETREXED
     Indication: Lung adenocarcinoma stage III
     Dosage: DOSE DECREASED TO 60%
     Dates: start: 20251111

REACTIONS (3)
  - Myelosuppression [Recovered/Resolved]
  - Pneumonia [Recovered/Resolved]
  - Decreased appetite [Recovered/Resolved]

NARRATIVE: CASE EVENT DATE: 20250801
